FAERS Safety Report 6571955-4 (Version None)
Quarter: 2010Q1

REPORT INFORMATION
  Report Type: 
  Country: None (occurrence: None)
  Receive Date: 20100205
  Receipt Date: 20100128
  Transmission Date: 20100710
  Serious: Yes (Hospitalization)
  Sender: FDA-Public Use
  Company Number: US-ALEXION-A200901070

PATIENT
  Sex: Male

DRUGS (10)
  1. SOLIRIS [Suspect]
     Indication: PAROXYSMAL NOCTURNAL HAEMOGLOBINURIA
     Dosage: 600 MG, QW X 4 WEEKS
     Route: 042
     Dates: start: 20091204, end: 20091224
  2. SOLIRIS [Suspect]
     Dosage: 900 MG, UNK
     Route: 042
     Dates: start: 20100114
  3. VITAMIN B12                        /00056201/ [Concomitant]
     Dosage: 1 MG, QD
     Route: 048
  4. LASIX [Concomitant]
     Dosage: 40 MG, QD
     Route: 048
  5. FOLIC ACID [Concomitant]
     Indication: PAROXYSMAL NOCTURNAL HAEMOGLOBINURIA
     Dosage: 5 MG, QD
     Route: 048
  6. LISINOPRIL [Concomitant]
     Indication: BLOOD PRESSURE
     Dosage: 40 MG, QD
     Route: 048
  7. OXYCODONE HCL [Concomitant]
     Indication: PAIN
     Dosage: 10 MG, Q6H PRN
     Route: 048
  8. MAGNESIUM OXIDE [Concomitant]
     Indication: DRUG USE FOR UNKNOWN INDICATION
     Dosage: 400 MG, QD
     Route: 048
  9. ALDACTONE [Concomitant]
     Indication: HEPATIC STEATOSIS
     Dosage: 25 MG, QD
     Route: 048
  10. IRON [Concomitant]
     Dosage: 325 MG, TID
     Route: 048

REACTIONS (4)
  - HAEMOLYSIS [None]
  - INFLUENZA [None]
  - MALAISE [None]
  - MYALGIA [None]
